FAERS Safety Report 9185949 (Version 1)
Quarter: 2013Q1

REPORT INFORMATION
  Report Type: Spontaneous
  Country: CO (occurrence: CO)
  Receive Date: 20130325
  Receipt Date: 20130325
  Transmission Date: 20140127
  Serious: Yes (Hospitalization, Other)
  Sender: FDA-Public Use
  Company Number: CO-ELI_LILLY_AND_COMPANY-CO201303005104

PATIENT
  Age: 54 Year
  Sex: Female

DRUGS (4)
  1. FORSTEO [Suspect]
     Dosage: 20 UG, QD
     Dates: start: 201209, end: 20121231
  2. LYRICA [Concomitant]
  3. TRAMADOL [Concomitant]
  4. BAYROGEL [Concomitant]

REACTIONS (2)
  - Intestinal obstruction [Recovering/Resolving]
  - Abdominal hernia [Unknown]
